FAERS Safety Report 13025161 (Version 2)
Quarter: 2017Q3

REPORT INFORMATION
  Report Type: Report from Study
  Country: None (occurrence: BR)
  Receive Date: 20161214
  Receipt Date: 20170829
  Transmission Date: 20171127
  Serious: Yes (Other)
  Sender: FDA-Public Use
  Company Number: BR-ABBVIE-16P-020-1805861-00

PATIENT
  Sex: Female
  Weight: 54 kg

DRUGS (15)
  1. PROPANOLOL [Concomitant]
     Active Substance: PROPRANOLOL HYDROCHLORIDE
     Indication: BLOOD PRESSURE MEASUREMENT
     Dosage: 40MG IN MORNING AND NIGHT; DAILY DOSE 80MG
     Dates: start: 2013
  2. OMEGA 3 [Concomitant]
     Active Substance: OMEGA-3 FATTY ACIDS
     Indication: BLOOD TRIGLYCERIDES
     Dosage: ONCE A DAY IN THE BREAKFAST
     Dates: start: 2014
  3. AMLODIPINE [Concomitant]
     Active Substance: AMLODIPINE BESYLATE
     Indication: CARDIAC DISORDER
     Dosage: DAILY DOSE: 2.5MG IN THE BREAKFAST
     Dates: start: 2013
  4. LOSARTAN. [Concomitant]
     Active Substance: LOSARTAN
     Indication: BLOOD PRESSURE MEASUREMENT
     Dosage: DAILY DOSE: 40MG IN THE BREAKFAST
  5. ATORVASTATIN [Concomitant]
     Active Substance: ATORVASTATIN
     Indication: BLOOD CHOLESTEROL
     Dosage: 1 UNKNOWN OF 20 MG AT LUNCH
  6. METFORMIN [Concomitant]
     Active Substance: METFORMIN HYDROCHLORIDE
     Indication: DIABETES MELLITUS
     Dosage: 2 ^UNKNOWN^ AT LUNCH, THEN INCREASED TO 3,
  7. SYNTHROID [Suspect]
     Active Substance: LEVOTHYROXINE SODIUM
     Indication: HYPOTHYROIDISM
     Dosage: DAILY DOSE: 75MCG; IN THE MORNING, FASTING
     Route: 048
     Dates: start: 2006
  8. FENOFIBRATE. [Concomitant]
     Active Substance: FENOFIBRATE
     Indication: BLOOD TRIGLYCERIDES
     Dosage: 1 ^UNKNOWN^ AT LUNCH, SOMETIMES 20 MG, OTHER TIMES 40 MG
  9. ASPIRINA PREVENT [Concomitant]
     Active Substance: ASPIRIN
     Indication: ANTICOAGULANT THERAPY
     Dosage: 1 ^UNKNOWN^ OF 100 MG AT LUNCH
  10. SYNTHROID [Suspect]
     Active Substance: LEVOTHYROXINE SODIUM
     Dosage: DAILY DOSE: 88MCG; IN THE MORNING, FASTING
     Route: 048
     Dates: start: 201707
  11. OMEGA 3 [Concomitant]
     Active Substance: OMEGA-3 FATTY ACIDS
     Indication: BLOOD CHOLESTEROL
  12. OMEPRAZOLE. [Concomitant]
     Active Substance: OMEPRAZOLE
     Indication: GASTRIC DISORDER
     Dosage: 1 TABLET OF 20 MG IN THE MORNING AND NIGHT (DAILY DOSE: 40 MG)
  13. METILDOPA [Concomitant]
     Active Substance: METHYLDOPA
     Indication: BLOOD PRESSURE MEASUREMENT
     Dosage: DAILY DOSE: 1000MG; 500MG IN MORNING AND NIGHT
     Dates: start: 2013
  14. METILDOPA [Concomitant]
     Active Substance: METHYLDOPA
     Indication: CARDIAC DISORDER
  15. OMEGA 3 [Concomitant]
     Active Substance: OMEGA-3 FATTY ACIDS
     Indication: MEMORY IMPAIRMENT

REACTIONS (3)
  - Diabetes mellitus [Not Recovered/Not Resolved]
  - Investigation abnormal [Unknown]
  - Vitamin D decreased [Unknown]

NARRATIVE: CASE EVENT DATE: 2013
